FAERS Safety Report 19200433 (Version 2)
Quarter: 2021Q2

REPORT INFORMATION
  Report Type: Spontaneous
  Country: PL (occurrence: PL)
  Receive Date: 20210429
  Receipt Date: 20210513
  Transmission Date: 20210717
  Serious: Yes (Hospitalization, Other)
  Sender: FDA-Public Use
  Company Number: PL-JNJFOC-20210444448

PATIENT
  Age: 80 Year
  Sex: Male

DRUGS (3)
  1. XARELTO [Suspect]
     Active Substance: RIVAROXABAN
     Indication: ATRIAL FIBRILLATION
     Dosage: 20 MG, UNK
     Route: 048
  2. XARELTO [Suspect]
     Active Substance: RIVAROXABAN
     Indication: THROMBOSIS PROPHYLAXIS
     Dosage: 15 MG, QD
     Route: 048
     Dates: start: 20210419
  3. XARELTO [Suspect]
     Active Substance: RIVAROXABAN
     Indication: CEREBROVASCULAR ACCIDENT PROPHYLAXIS

REACTIONS (14)
  - Epistaxis [Unknown]
  - Aortic aneurysm [Unknown]
  - Vitamin B12 deficiency [Unknown]
  - Gingival bleeding [Unknown]
  - Product dose omission issue [Unknown]
  - Gastric ulcer [Unknown]
  - Mucosal inflammation [Unknown]
  - Dry throat [Unknown]
  - Dry mouth [Unknown]
  - Upper gastrointestinal haemorrhage [Unknown]
  - Duodenal ulcer [Unknown]
  - Malaise [Unknown]
  - Taste disorder [Unknown]
  - Tooth loss [Unknown]

NARRATIVE: CASE EVENT DATE: 2021
